FAERS Safety Report 24792053 (Version 1)
Quarter: 2024Q4

REPORT INFORMATION
  Report Type: Spontaneous
  Country: AT (occurrence: AT)
  Receive Date: 20241231
  Receipt Date: 20241231
  Transmission Date: 20250115
  Serious: Yes (Hospitalization, Other)
  Sender: CELLTRION
  Company Number: AT-ABBVIE-5808042

PATIENT

DRUGS (3)
  1. ADALIMUMAB [Suspect]
     Active Substance: ADALIMUMAB
     Indication: Colitis ulcerative
     Route: 058
  2. USTEKINUMAB [Concomitant]
     Active Substance: USTEKINUMAB
     Indication: Product used for unknown indication
     Dosage: 90 MG, EVERY 4 WEEKS
     Route: 058
  3. ASPIRIN [Concomitant]
     Active Substance: ASPIRIN
     Indication: Product used for unknown indication
     Dosage: 4 G, QD

REACTIONS (7)
  - Colitis ulcerative [Recovering/Resolving]
  - Diarrhoea haemorrhagic [Recovering/Resolving]
  - Cholecystectomy [Unknown]
  - Hypothyroidism [Unknown]
  - Defaecation urgency [Unknown]
  - Rectal tenesmus [Recovered/Resolved]
  - Osteopenia [Unknown]

NARRATIVE: CASE EVENT DATE: 20190101
